FAERS Safety Report 17491412 (Version 3)
Quarter: 2020Q2

REPORT INFORMATION
  Report Type: Spontaneous
  Country: IN (occurrence: IN)
  Receive Date: 20200304
  Receipt Date: 20200423
  Transmission Date: 20200713
  Serious: Yes (Death, Other)
  Sender: FDA-Public Use
  Company Number: IN-ABBVIE-20K-078-3296481-00

PATIENT
  Sex: Male

DRUGS (1)
  1. VENCLEXTA [Suspect]
     Active Substance: VENETOCLAX
     Indication: NEOPLASM MALIGNANT
     Route: 048

REACTIONS (4)
  - Suspected counterfeit product [Unknown]
  - Drug ineffective [Unknown]
  - Malignant neoplasm progression [Fatal]
  - Prescription drug used without a prescription [Unknown]
